FAERS Safety Report 21960152 (Version 2)
Quarter: 2024Q1

REPORT INFORMATION
  Report Type: Report from Study
  Country: CA (occurrence: CA)
  Receive Date: 20230207
  Receipt Date: 20240223
  Transmission Date: 20240409
  Serious: Yes (Hospitalization, Other)
  Sender: FDA-Public Use
  Company Number: CA-ALXN-A202300905

PATIENT
  Age: 16 Year
  Sex: Female
  Weight: 33 kg

DRUGS (11)
  1. SOLIRIS [Suspect]
     Active Substance: ECULIZUMAB
     Indication: Paroxysmal nocturnal haemoglobinuria
     Dosage: 600 MG, QW
     Route: 042
     Dates: start: 20141126, end: 20141223
  2. SOLIRIS [Suspect]
     Active Substance: ECULIZUMAB
     Dosage: 600 MG, Q2W
     Route: 065
     Dates: start: 20150107, end: 20160901
  3. SOLIRIS [Suspect]
     Active Substance: ECULIZUMAB
     Dosage: 900 MG, Q2W
     Route: 065
     Dates: start: 20160915, end: 20200727
  4. SOLIRIS [Suspect]
     Active Substance: ECULIZUMAB
     Dosage: 1200 MG, Q2W
     Route: 042
     Dates: start: 20200811
  5. FOLIC ACID [Concomitant]
     Active Substance: FOLIC ACID
     Indication: Product used for unknown indication
     Dosage: 1 MG, QD
     Route: 048
     Dates: start: 201405
  6. GRAVOL [Concomitant]
     Active Substance: DIMENHYDRINATE
     Indication: Nausea
     Dosage: UNK, PRN
     Route: 048
  7. GRAVOL [Concomitant]
     Active Substance: DIMENHYDRINATE
     Indication: Vomiting
  8. TEMPRA [Concomitant]
     Active Substance: ACETAMINOPHEN
     Indication: Pyrexia
     Dosage: UNK, PRN
     Route: 048
  9. SYMBICORT [Concomitant]
     Active Substance: BUDESONIDE\FORMOTEROL FUMARATE DIHYDRATE
     Indication: Product used for unknown indication
     Dosage: UNK
     Route: 065
  10. VENTOLIN [Concomitant]
     Active Substance: ALBUTEROL SULFATE
     Indication: Product used for unknown indication
     Dosage: UNK
     Route: 065
  11. PEN-V                              /00001801/ [Concomitant]
     Indication: Antibiotic prophylaxis
     Dosage: UNK
     Route: 065

REACTIONS (4)
  - Arthritis reactive [Unknown]
  - Respiratory syncytial virus infection [Recovered/Resolved]
  - Meningococcal infection [Recovered/Resolved]
  - Haemoglobin decreased [Unknown]

NARRATIVE: CASE EVENT DATE: 20230101
